FAERS Safety Report 6496460-5 (Version None)
Quarter: 2009Q4

REPORT INFORMATION
  Report Type: 
  Country: None (occurrence: None)
  Receive Date: 20091214
  Receipt Date: 20091209
  Transmission Date: 20100525
  Serious: Yes (Other)
  Sender: FDA-Public Use
  Company Number: FR-RB-003361-08

PATIENT
  Sex: Male

DRUGS (2)
  1. SUBUTEX [Suspect]
     Indication: DRUG USE FOR UNKNOWN INDICATION
     Dosage: RECEIVED 2-3MG DAILY
     Route: 065
  2. SUBUTEX [Suspect]
     Dosage: PRESCRIBED AT 2.5MG QD BUT TOOK 1 MG QD
     Route: 060

REACTIONS (5)
  - ANXIETY [None]
  - DEPRESSION [None]
  - DRUG WITHDRAWAL SYNDROME [None]
  - RESPIRATORY DISORDER [None]
  - SUICIDAL IDEATION [None]
